FAERS Safety Report 18433001 (Version 2)
Quarter: 2021Q1

REPORT INFORMATION
  Report Type: Spontaneous
  Country: US (occurrence: US)
  Receive Date: 20201027
  Receipt Date: 20210114
  Transmission Date: 20210419
  Serious: Yes (Hospitalization, Other)
  Sender: FDA-Public Use
  Company Number: US-ASTRAZENECA-2020SF38984

PATIENT
  Age: 18530 Day
  Sex: Male

DRUGS (10)
  1. LASIX [Concomitant]
     Active Substance: FUROSEMIDE
  2. ONGLYZA [Suspect]
     Active Substance: SAXAGLIPTIN HYDROCHLORIDE
     Indication: TYPE 2 DIABETES MELLITUS
     Dosage: 5.0MG UNKNOWN
     Route: 048
     Dates: start: 20141110, end: 20150413
  3. LIPITOR [Concomitant]
     Active Substance: ATORVASTATIN CALCIUM
  4. PLAVIX [Concomitant]
     Active Substance: CLOPIDOGREL BISULFATE
  5. ONGLYZA [Suspect]
     Active Substance: SAXAGLIPTIN HYDROCHLORIDE
     Indication: TYPE 2 DIABETES MELLITUS
     Route: 048
     Dates: start: 201503
  6. GLIMEPIRIDE. [Concomitant]
     Active Substance: GLIMEPIRIDE
  7. LOSARTAN. [Concomitant]
     Active Substance: LOSARTAN
  8. AMARYL [Concomitant]
     Active Substance: GLIMEPIRIDE
  9. METOPROLOL. [Concomitant]
     Active Substance: METOPROLOL
  10. POTASSIUM CHLORIDE. [Concomitant]
     Active Substance: POTASSIUM CHLORIDE

REACTIONS (3)
  - Cardiac failure [Unknown]
  - Cardiac failure congestive [Unknown]
  - Acute left ventricular failure [Unknown]

NARRATIVE: CASE EVENT DATE: 20150405
